FAERS Safety Report 17165846 (Version 2)
Quarter: 2025Q3

REPORT INFORMATION
  Report Type: Spontaneous
  Country: EU (occurrence: EU)
  Receive Date: 20191217
  Receipt Date: 20250708
  Transmission Date: 20251020
  Serious: Yes (Hospitalization, Other)
  Sender: SANOFI AVENTIS
  Company Number: None

PATIENT
  Sex: Female

DRUGS (3)
  1. PROPIOMAZINE [Suspect]
     Active Substance: PROPIOMAZINE
     Route: 048
     Dates: start: 20180914, end: 20180914
  2. DIAZEPAM [Suspect]
     Active Substance: DIAZEPAM
     Route: 048
     Dates: start: 20180914, end: 20180914
  3. ZOLPIDEM TARTRATE [Suspect]
     Active Substance: ZOLPIDEM TARTRATE
     Route: 048
     Dates: start: 20180914, end: 20180914

REACTIONS (4)
  - Suicide attempt [Unknown]
  - Mydriasis [Unknown]
  - Lethargy [Unknown]
  - Intentional overdose [Unknown]

NARRATIVE: CASE EVENT DATE: 20180914
